FAERS Safety Report 15808319 (Version 2)
Quarter: 2019Q1

REPORT INFORMATION
  Report Type: Report from Study
  Country: US (occurrence: US)
  Receive Date: 20190110
  Receipt Date: 20190125
  Transmission Date: 20190417
  Serious: Yes (Hospitalization)
  Sender: FDA-Public Use
  Company Number: US-GILEAD-2018-0378690

PATIENT
  Age: 65 Year
  Sex: Female
  Weight: 53.2 kg

DRUGS (28)
  1. CYCLOPHOSPHAMIDE. [Suspect]
     Active Substance: CYCLOPHOSPHAMIDE
     Indication: BONE MARROW CONDITIONING REGIMEN
     Dosage: 500 MG/M2, QD
     Route: 042
     Dates: start: 20181130, end: 20181202
  2. FLUDARABINE [Suspect]
     Active Substance: FLUDARABINE PHOSPHATE
     Indication: BONE MARROW CONDITIONING REGIMEN
     Dosage: 30 MG/M2, QD
     Route: 042
     Dates: start: 20181130, end: 20181202
  3. MUCOMYST [ACETYLCYSTEINE] [Concomitant]
  4. CALCIUM CARBONATE WITH D3 [Concomitant]
  5. IPRATROPIUM BROMIDE. [Concomitant]
     Active Substance: IPRATROPIUM BROMIDE
  6. MULTIVITAMIN [VITAMINS NOS] [Concomitant]
  7. DELTASONE [PREDNISONE] [Concomitant]
  8. FLOVENT [Concomitant]
     Active Substance: FLUTICASONE PROPIONATE
  9. ATIVAN [Concomitant]
     Active Substance: LORAZEPAM
  10. COMPAZINE [Concomitant]
     Active Substance: PROCHLORPERAZINE MALEATE
  11. SODIUM CHLORIDE. [Concomitant]
     Active Substance: SODIUM CHLORIDE
  12. MESNA. [Suspect]
     Active Substance: MESNA
     Indication: PROPHYLAXIS
     Dosage: 125 MG/M2, BID
     Route: 042
     Dates: start: 20181130, end: 20181202
  13. ZYLOPRIM [Concomitant]
     Active Substance: ALLOPURINOL
  14. LOVENOX [Concomitant]
     Active Substance: ENOXAPARIN SODIUM
  15. ALLEGRA [Concomitant]
     Active Substance: FEXOFENADINE HYDROCHLORIDE
  16. HIBICLENS [Concomitant]
     Active Substance: CHLORHEXIDINE GLUCONATE
  17. ALBUTEROL [SALBUTAMOL] [Concomitant]
     Active Substance: ALBUTEROL
  18. AXICABTAGENE CILOLEUCEL [Suspect]
     Active Substance: AXICABTAGENE CILOLEUCEL
     Indication: DIFFUSE LARGE B-CELL LYMPHOMA
     Dosage: 68 ML, ONCE
     Route: 042
     Dates: start: 20181205, end: 20181205
  19. TOPROL XL [Concomitant]
     Active Substance: METOPROLOL SUCCINATE
  20. ZOFRAN [Concomitant]
     Active Substance: ONDANSETRON HYDROCHLORIDE
  21. MAG-OX [Concomitant]
     Active Substance: MAGNESIUM OXIDE
  22. COLACE [Concomitant]
     Active Substance: DOCUSATE SODIUM
  23. ROBITUSSIN (GUAIFENESIN) [Concomitant]
     Active Substance: GUAIFENESIN
  24. LEVAQUIN [Concomitant]
     Active Substance: LEVOFLOXACIN
  25. LEVOTHYROXINE. [Concomitant]
     Active Substance: LEVOTHYROXINE
  26. PREVNAR 13 [Concomitant]
     Active Substance: PNEUMOCOCCAL 13-VALENT CONJUGATE VACCINE
  27. CRANBERRY [VACCINIUM MACROCARPON] [Concomitant]
  28. DECADRON [DEXAMETHASONE] [Concomitant]
     Dosage: 40 MG, QD

REACTIONS (2)
  - Pneumonia [Unknown]
  - Pyrexia [Recovered/Resolved]

NARRATIVE: CASE EVENT DATE: 20181202
